FAERS Safety Report 9155850 (Version 1)
Quarter: 2013Q1

REPORT INFORMATION
  Report Type: Spontaneous
  Country: US (occurrence: US)
  Receive Date: 20130311
  Receipt Date: 20130311
  Transmission Date: 20140127
  Serious: Yes (Hospitalization, Other)
  Sender: FDA-Public Use
  Company Number: US-BAXTER-2013BAX007638

PATIENT
  Age: 40 Year
  Sex: Female

DRUGS (1)
  1. DIANEAL LOW CALCIUM [Suspect]
     Indication: PERITONEAL DIALYSIS
     Route: 033
     Dates: start: 20110523

REACTIONS (4)
  - Asphyxia [Recovered/Resolved]
  - Pulmonary oedema [Recovered/Resolved]
  - Fluid overload [Recovered/Resolved]
  - Hypertension [Recovered/Resolved]
